FAERS Safety Report 7528375-5 (Version None)
Quarter: 2011Q2

REPORT INFORMATION
  Report Type: 
  Country: None (occurrence: None)
  Receive Date: 20110607
  Receipt Date: 20110204
  Transmission Date: 20111010
  Serious: No
  Sender: FDA-Public Use
  Company Number: US-ASTRAZENECA-2011SE06494

PATIENT
  Age: 39 Year
  Sex: Female

DRUGS (2)
  1. PRILOSEC OTC [Suspect]
     Indication: GASTROOESOPHAGEAL REFLUX DISEASE
     Route: 048
     Dates: start: 20110202, end: 20110202
  2. PRILOSEC OTC [Suspect]
     Indication: GASTRIC DISORDER
     Route: 048
     Dates: start: 20110202, end: 20110202

REACTIONS (5)
  - FLUSHING [None]
  - DRUG EXPOSURE DURING PREGNANCY [None]
  - FEELING HOT [None]
  - DIZZINESS [None]
  - FEELING ABNORMAL [None]
